APPROVED DRUG PRODUCT: BACLOFEN
Active Ingredient: BACLOFEN
Strength: 20MG
Dosage Form/Route: TABLET;ORAL
Application: A077862 | Product #002
Applicant: SUN PHARMACEUTICAL INDUSTRIES INC
Approved: Aug 14, 2006 | RLD: No | RS: No | Type: DISCN